FAERS Safety Report 23590409 (Version 4)
Quarter: 2025Q1

REPORT INFORMATION
  Report Type: Spontaneous
  Country: CA (occurrence: CA)
  Receive Date: 20240304
  Receipt Date: 20250221
  Transmission Date: 20250409
  Serious: Yes (Death, Hospitalization, Other)
  Sender: GLAXOSMITHKLINE
  Company Number: CA-GLAXOSMITHKLINE-CA2024AMR025466

PATIENT

DRUGS (47)
  1. EPOPROSTENOL SODIUM [Suspect]
     Active Substance: EPOPROSTENOL SODIUM
     Indication: Pulmonary arterial hypertension
     Route: 042
  2. EPOPROSTENOL SODIUM [Suspect]
     Active Substance: EPOPROSTENOL SODIUM
     Route: 042
  3. ADCIRCA [Suspect]
     Active Substance: TADALAFIL
     Indication: Pulmonary arterial hypertension
     Route: 048
  4. MACITENTAN [Suspect]
     Active Substance: MACITENTAN
     Indication: Pulmonary arterial hypertension
     Dosage: 10 MG, QD
     Route: 048
  5. SELEXIPAG [Suspect]
     Active Substance: SELEXIPAG
     Indication: Pulmonary arterial hypertension
     Route: 048
  6. SELEXIPAG [Suspect]
     Active Substance: SELEXIPAG
     Route: 048
  7. SELEXIPAG [Suspect]
     Active Substance: SELEXIPAG
     Route: 048
  8. SELEXIPAG [Suspect]
     Active Substance: SELEXIPAG
     Route: 048
  9. SELEXIPAG [Suspect]
     Active Substance: SELEXIPAG
     Route: 048
  10. SELEXIPAG [Suspect]
     Active Substance: SELEXIPAG
     Route: 048
  11. SELEXIPAG [Suspect]
     Active Substance: SELEXIPAG
     Route: 048
  12. SELEXIPAG [Suspect]
     Active Substance: SELEXIPAG
     Route: 048
  13. SELEXIPAG [Suspect]
     Active Substance: SELEXIPAG
     Route: 048
  14. SELEXIPAG [Suspect]
     Active Substance: SELEXIPAG
     Route: 048
  15. SELEXIPAG [Suspect]
     Active Substance: SELEXIPAG
     Route: 048
  16. SELEXIPAG [Suspect]
     Active Substance: SELEXIPAG
     Route: 048
  17. SELEXIPAG [Suspect]
     Active Substance: SELEXIPAG
     Route: 048
  18. SELEXIPAG [Suspect]
     Active Substance: SELEXIPAG
     Route: 048
  19. SELEXIPAG [Suspect]
     Active Substance: SELEXIPAG
     Route: 048
  20. SELEXIPAG [Suspect]
     Active Substance: SELEXIPAG
     Route: 048
  21. ADEMPAS [Concomitant]
     Active Substance: RIOCIGUAT
     Indication: Pulmonary arterial hypertension
     Route: 048
  22. ADEMPAS [Concomitant]
     Active Substance: RIOCIGUAT
     Route: 048
  23. NIFEDIPINE [Concomitant]
     Active Substance: NIFEDIPINE
     Indication: Raynaud^s phenomenon
     Route: 048
  24. TREPROSTINIL [Concomitant]
     Active Substance: TREPROSTINIL
     Indication: Pulmonary arterial hypertension
     Route: 048
  25. TREPROSTINIL [Concomitant]
     Active Substance: TREPROSTINIL
     Route: 048
  26. TREPROSTINIL [Concomitant]
     Active Substance: TREPROSTINIL
     Route: 048
  27. TREPROSTINIL [Concomitant]
     Active Substance: TREPROSTINIL
     Route: 048
  28. TREPROSTINIL [Concomitant]
     Active Substance: TREPROSTINIL
     Route: 048
  29. TREPROSTINIL [Concomitant]
     Active Substance: TREPROSTINIL
     Route: 048
  30. ATORVASTATIN CALCIUM [Concomitant]
     Active Substance: ATORVASTATIN CALCIUM
     Indication: Blood cholesterol decreased
     Route: 048
  31. DARBEPOETIN ALFA [Concomitant]
     Active Substance: DARBEPOETIN ALFA
     Indication: Anaemia
     Route: 042
  32. EZETIMIBE [Concomitant]
     Active Substance: EZETIMIBE
     Indication: Blood cholesterol decreased
     Route: 048
  33. FUROSEMIDE [Concomitant]
     Active Substance: FUROSEMIDE
     Indication: Diuretic therapy
     Route: 048
  34. HYDROMORPHONE [Concomitant]
     Active Substance: HYDROMORPHONE
     Indication: Pain
     Route: 048
  35. LEVOTHYROXINE SODIUM [Concomitant]
     Active Substance: LEVOTHYROXINE SODIUM
     Indication: Hypothyroidism
     Route: 048
  36. POLYETHYLENE GLYCOLS [Concomitant]
     Active Substance: POLYETHYLENE GLYCOLS
     Indication: Constipation
     Route: 048
  37. MELATONIN [Concomitant]
     Active Substance: MELATONIN
     Indication: Sleep disorder
     Route: 048
  38. MOMETASONE FUROATE [Concomitant]
     Active Substance: MOMETASONE FUROATE
     Indication: Hypersensitivity
     Route: 055
  39. PANTOPRAZOLE [Concomitant]
     Active Substance: PANTOPRAZOLE
     Indication: Hyperchlorhydria
     Route: 048
  40. PROPYLENE GLYCOL [Concomitant]
     Active Substance: PROPYLENE GLYCOL
     Indication: Multiple allergies
     Route: 055
  41. PROPYLENE GLYCOL [Concomitant]
     Active Substance: PROPYLENE GLYCOL
     Indication: Epistaxis
  42. QUETIAPINE FUMARATE [Concomitant]
     Active Substance: QUETIAPINE FUMARATE
     Indication: Affective disorder
  43. SERTRALINE HYDROCHLORIDE [Concomitant]
     Active Substance: SERTRALINE HYDROCHLORIDE
     Indication: Depression
     Route: 048
  44. FERRIC SODIUM GLUCONATE [Concomitant]
     Indication: Anaemia
     Route: 042
  45. VANCOMYCIN [Concomitant]
     Active Substance: VANCOMYCIN
     Indication: Infection
     Route: 048
  46. CHOLECALCIFEROL [Concomitant]
     Active Substance: CHOLECALCIFEROL
     Indication: Vitamin D
     Route: 048
  47. ACETAMINOPHEN [Concomitant]
     Active Substance: ACETAMINOPHEN
     Indication: Pain
     Route: 048

REACTIONS (13)
  - Influenza like illness [Fatal]
  - Pulmonary arterial hypertension [Fatal]
  - COVID-19 pneumonia [Fatal]
  - Dyspnoea [Fatal]
  - Fall [Fatal]
  - Haemorrhage intracranial [Fatal]
  - Respiratory failure [Fatal]
  - Acute kidney injury [Fatal]
  - Hypoxia [Fatal]
  - Peripheral ischaemia [Fatal]
  - Pulmonary mass [Fatal]
  - Renal failure [Fatal]
  - Right ventricular failure [Fatal]
